APPROVED DRUG PRODUCT: THEOPHYLLINE
Active Ingredient: THEOPHYLLINE
Strength: 200MG
Dosage Form/Route: TABLET, EXTENDED RELEASE;ORAL
Application: A087400 | Product #004
Applicant: NOSTRUM PHARMACEUTICALS LLC
Approved: Feb 21, 1985 | RLD: No | RS: No | Type: RX